FAERS Safety Report 7902163-X (Version None)
Quarter: 2011Q4

REPORT INFORMATION
  Report Type: 
  Country: None (occurrence: None)
  Receive Date: 20111108
  Receipt Date: 20100804
  Transmission Date: 20120403
  Serious: Yes (Other)
  Sender: FDA-Public Use
  Company Number: US-PFIZER INC-2010098344

PATIENT
  Sex: Female
  Weight: 40 kg

DRUGS (4)
  1. BACTRIM [Suspect]
     Indication: POLYMYOSITIS
     Dosage: UNK
     Dates: start: 20100101
  2. LORTAB [Concomitant]
     Indication: PAIN
     Dosage: 5 MG, EVERY 4 HRS
     Route: 048
  3. CLINDAMYCIN HCL [Suspect]
     Indication: POLYMYOSITIS
     Dosage: 300 MG, 3X/DAY
     Route: 048
     Dates: start: 20100101, end: 20100101
  4. KEFLEX [Suspect]
     Indication: POLYMYOSITIS
     Dosage: UNK
     Dates: start: 20100101

REACTIONS (3)
  - DRUG INEFFECTIVE [None]
  - DIARRHOEA [None]
  - ABDOMINAL PAIN [None]
